FAERS Safety Report 5194697-9 (Version None)
Quarter: 2006Q4

REPORT INFORMATION
  Report Type: 
  Country: None (occurrence: None)
  Receive Date: 20061229
  Receipt Date: 20061220
  Transmission Date: 20070319
  Serious: Yes (Disabling)
  Sender: FDA-Public Use
  Company Number: PHRM2006FR03403

PATIENT
  Age: 58 Year
  Sex: Female

DRUGS (2)
  1. CLASTOBAN [Concomitant]
  2. ZOMETA [Suspect]
     Indication: METASTASES TO BONE
     Dosage: 4 MG, QMO
     Route: 042
     Dates: start: 20020301, end: 20060201

REACTIONS (3)
  - GINGIVAL SWELLING [None]
  - OSTEONECROSIS [None]
  - TOOTH INFECTION [None]
